FAERS Safety Report 9431789 (Version 2)
Quarter: 2013Q4

REPORT INFORMATION
  Report Type: Spontaneous
  Country: US (occurrence: None)
  Receive Date: 20130726
  Receipt Date: 20131017
  Transmission Date: 20140711
  Serious: Yes (Disabling, Other)
  Sender: FDA-Public Use
  Company Number: ACO_29520_2012

PATIENT
  Age: 50 Year
  Sex: Female

DRUGS (1)
  1. AMPYRA [Suspect]
     Indication: PRODUCT USED FOR UNKNOWN INDICATION
     Route: 048
     Dates: start: 201006

REACTIONS (7)
  - Urinary retention [None]
  - Urinary tract infection [None]
  - Urine odour abnormal [None]
  - Pollakiuria [None]
  - Micturition urgency [None]
  - Chromaturia [None]
  - Blood urine present [None]
